FAERS Safety Report 24084552 (Version 1)
Quarter: 2024Q3

REPORT INFORMATION
  Report Type: Spontaneous
  Country: IN (occurrence: IN)
  Receive Date: 20240712
  Receipt Date: 20240712
  Transmission Date: 20241016
  Serious: Yes (Hospitalization, Other)
  Sender: TORRENT
  Company Number: IN-TORRENT-00003579

PATIENT
  Age: 30 Year
  Sex: Male

DRUGS (1)
  1. OLANZAPINE [Suspect]
     Active Substance: OLANZAPINE
     Indication: Behaviour disorder
     Route: 065

REACTIONS (2)
  - Sickle cell anaemia with crisis [Recovering/Resolving]
  - Condition aggravated [Recovering/Resolving]
